FAERS Safety Report 14099360 (Version 2)
Quarter: 2017Q4

REPORT INFORMATION
  Report Type: Spontaneous
  Country: PT (occurrence: PT)
  Receive Date: 20171017
  Receipt Date: 20171101
  Transmission Date: 20180321
  Serious: Yes (Death, Hospitalization, Other)
  Sender: FDA-Public Use
  Company Number: PT-GILEAD-2017-0293139

PATIENT
  Sex: Female

DRUGS (2)
  1. ZYDELIG [Suspect]
     Active Substance: IDELALISIB
     Indication: B-CELL LYMPHOMA
     Dosage: 100 MG, UNK
     Route: 065
     Dates: start: 201704, end: 201707
  2. GEMOX                              /08454001/ [Concomitant]

REACTIONS (3)
  - Diarrhoea haemorrhagic [Unknown]
  - Cytomegalovirus infection [Unknown]
  - Pneumonia klebsiella [Fatal]

NARRATIVE: CASE EVENT DATE: 201707
